FAERS Safety Report 5134340-8 (Version None)
Quarter: 2006Q4

REPORT INFORMATION
  Report Type: 
  Country: None (occurrence: None)
  Receive Date: 20060831
  Receipt Date: 20051026
  Transmission Date: 20070319
  Serious: Yes (Life-Threatening)
  Sender: FDA-Public Use
  Company Number: 247092

PATIENT
  Age: 45 Year
  Sex: Female

DRUGS (2)
  1. NOVOLIN N [Suspect]
     Indication: DIABETES MELLITUS INSULIN-DEPENDENT
     Dosage: 14 IU, BID, SUBCUTANEOUS
     Route: 058
     Dates: start: 20020101
  2. NOVOLIN R [Concomitant]

REACTIONS (1)
  - HYPOGLYCAEMIC COMA [None]
